FAERS Safety Report 19844062 (Version 2)
Quarter: 2021Q3

REPORT INFORMATION
  Report Type: Spontaneous
  Country: US (occurrence: US)
  Receive Date: 20210917
  Receipt Date: 20210928
  Transmission Date: 20211014
  Serious: No
  Sender: FDA-Public Use
  Company Number: US-ELI_LILLY_AND_COMPANY-US202109006683

PATIENT
  Sex: Female

DRUGS (9)
  1. BASAGLAR [Suspect]
     Active Substance: INSULIN GLARGINE
     Dosage: 25 U, DAILY
     Route: 058
  2. BASAGLAR [Suspect]
     Active Substance: INSULIN GLARGINE
     Dosage: 25 U, UNKNOWN
     Route: 058
  3. BASAGLAR [Suspect]
     Active Substance: INSULIN GLARGINE
     Dosage: 25 U, DAILY
     Route: 058
  4. BASAGLAR [Suspect]
     Active Substance: INSULIN GLARGINE
     Dosage: 27 U, UNKNOWN
     Route: 058
  5. BASAGLAR [Suspect]
     Active Substance: INSULIN GLARGINE
     Indication: TYPE 2 DIABETES MELLITUS
     Dosage: 25 U, DAILY
     Route: 058
     Dates: start: 202103
  6. BASAGLAR [Suspect]
     Active Substance: INSULIN GLARGINE
     Indication: TYPE 2 DIABETES MELLITUS
     Dosage: 25 U, DAILY
     Route: 058
     Dates: start: 202103
  7. BASAGLAR [Suspect]
     Active Substance: INSULIN GLARGINE
     Dosage: 27 U, UNKNOWN
     Route: 058
  8. BASAGLAR [Suspect]
     Active Substance: INSULIN GLARGINE
     Dosage: 25 U, UNKNOWN
     Route: 058
  9. BASAGLAR [Suspect]
     Active Substance: INSULIN GLARGINE
     Dosage: 22 U, UNKNOWN
     Route: 058

REACTIONS (2)
  - Memory impairment [Unknown]
  - Feeling abnormal [Unknown]
